FAERS Safety Report 8560682-X (Version None)
Quarter: 2012Q3

REPORT INFORMATION
  Report Type: 
  Country: None (occurrence: None)
  Receive Date: 20120802
  Receipt Date: 20120730
  Transmission Date: 20120928
  Serious: Yes (Other)
  Sender: FDA-Public Use
  Company Number: US-PFIZER INC-2012186169

PATIENT
  Sex: Male
  Weight: 81.6 kg

DRUGS (1)
  1. DEPO-TESTOSTERONE [Suspect]
     Indication: BLOOD TESTOSTERONE DECREASED
     Dosage: UNK
     Route: 030
     Dates: end: 20120101

REACTIONS (1)
  - HYPERSENSITIVITY [None]
